FAERS Safety Report 7119103-6 (Version None)
Quarter: 2010Q4

REPORT INFORMATION
  Report Type: 
  Country: None (occurrence: None)
  Receive Date: 20101123
  Receipt Date: 20101115
  Transmission Date: 20110411
  Serious: Yes (Other)
  Sender: FDA-Public Use
  Company Number: US-PFIZER INC-2010128378

PATIENT
  Sex: Female
  Weight: 98 kg

DRUGS (9)
  1. GENOTROPIN [Suspect]
     Indication: HYPOPITUITARISM
     Dosage: 0.2 MG, 1X/DAY
     Route: 058
  2. DEPO-PROVERA [Concomitant]
     Indication: CONTRACEPTION
     Dosage: 150 MG, EVERY 3 MONTHS
     Route: 030
  3. SYNTHROID [Concomitant]
     Indication: THYROID DISORDER
     Dosage: 1.25UG, HALF A PILL, 1X/DAY
     Route: 048
  4. CORTEF [Concomitant]
     Indication: HYPOTHALAMO-PITUITARY DISORDER
     Dosage: 5 MG, UNK
     Route: 048
  5. LORAZEPAM [Concomitant]
     Indication: ANXIETY
     Dosage: 0.5MG HALF A PILL EVERY 6 HOURS
     Route: 048
  6. FISH OIL [Concomitant]
     Indication: CARDIAC DISORDER
     Dosage: 1000 MG, UNK
     Route: 048
  7. DESMOPRESSIN [Concomitant]
     Indication: ELECTROLYTE IMBALANCE
     Dosage: 0.1 MG, 2X/DAY
  8. CALCIUM/MINERALS/VITAMIN D [Concomitant]
     Indication: MINERAL SUPPLEMENTATION
     Dosage: 500MG/600IU
  9. POTASSIUM [Concomitant]
     Indication: MINERAL SUPPLEMENTATION
     Dosage: 20 MEQ, 1X/DAY

REACTIONS (1)
  - CHRONIC OBSTRUCTIVE PULMONARY DISEASE [None]
